FAERS Safety Report 13791173 (Version 1)
Quarter: 2017Q3

REPORT INFORMATION
  Report Type: Spontaneous
  Country: FR (occurrence: FR)
  Receive Date: 20170725
  Receipt Date: 20170725
  Transmission Date: 20171127
  Serious: Yes (Hospitalization)
  Sender: FDA-Public Use
  Company Number: FR-SA-2017SA127736

PATIENT
  Age: 42 Year
  Sex: Female

DRUGS (4)
  1. PROGYNOVA [Suspect]
     Active Substance: ESTRADIOL VALERATE
     Dosage: DAY 7 TO DAY 12
     Route: 048
     Dates: start: 2012, end: 20170512
  2. UTROGESTAN [Suspect]
     Active Substance: PROGESTERONE
     Dosage: FROM DAY 13 TILL MENSTRUATIONS
     Route: 048
     Dates: start: 2012, end: 20170517
  3. CLOMID [Suspect]
     Active Substance: CLOMIPHENE CITRATE
     Dosage: DAY 4 TO DAY 7 OF MENSTRUAL CYCLE
     Route: 048
     Dates: start: 2012, end: 20170512
  4. MEDROL [Suspect]
     Active Substance: METHYLPREDNISOLONE
     Dosage: FROM DAY 13 TILL MENSTRUATIONS
     Route: 048
     Dates: start: 2012, end: 20170512

REACTIONS (2)
  - Vertigo [Recovered/Resolved with Sequelae]
  - Paresis [Recovered/Resolved]

NARRATIVE: CASE EVENT DATE: 20170512
